FAERS Safety Report 16727812 (Version 1)
Quarter: 2019Q3

REPORT INFORMATION
  Report Type: Spontaneous
  Country: AU (occurrence: AU)
  Receive Date: 20190822
  Receipt Date: 20190822
  Transmission Date: 20191005
  Serious: Yes (Other)
  Sender: FDA-Public Use
  Company Number: AU-ROCHE-2384969

PATIENT
  Age: 85 Year
  Sex: Female

DRUGS (4)
  1. LUCENTIS [Suspect]
     Active Substance: RANIBIZUMAB
     Dosage: 0.05 MG, QMO
     Route: 047
     Dates: start: 201807
  2. XALATAN [Concomitant]
     Active Substance: LATANOPROST
     Indication: GLAUCOMA
     Route: 065
  3. DUOTRAV [Concomitant]
     Active Substance: TIMOLOL MALEATE\TRAVOPROST
     Indication: GLAUCOMA
     Route: 065
  4. LUCENTIS [Suspect]
     Active Substance: RANIBIZUMAB
     Indication: NEOVASCULAR AGE-RELATED MACULAR DEGENERATION
     Dosage: 0.05 MG, QMO
     Route: 047
     Dates: start: 201806

REACTIONS (4)
  - Eye pain [Recovered/Resolved with Sequelae]
  - Visual impairment [Recovered/Resolved with Sequelae]
  - Endophthalmitis [Recovered/Resolved with Sequelae]
  - Ocular discomfort [Recovered/Resolved with Sequelae]

NARRATIVE: CASE EVENT DATE: 20180606
